FAERS Safety Report 13531645 (Version 1)
Quarter: 2017Q2

REPORT INFORMATION
  Report Type: Spontaneous
  Country: US (occurrence: US)
  Receive Date: 20170510
  Receipt Date: 20170510
  Transmission Date: 20170830
  Serious: Yes (Disabling)
  Sender: FDA-Public Use
  Company Number: None

PATIENT

DRUGS (1)
  1. PREDNISONE. [Suspect]
     Active Substance: PREDNISONE
     Indication: LICHEN PLANUS
     Dates: start: 20170214, end: 20170331

REACTIONS (6)
  - Infection [None]
  - Erythema [None]
  - Peripheral swelling [None]
  - Joint swelling [None]
  - Acne [None]
  - Weight increased [None]

NARRATIVE: CASE EVENT DATE: 20170502
